FAERS Safety Report 19264674 (Version 5)
Quarter: 2021Q2

REPORT INFORMATION
  Report Type: Report from Study
  Country: KR (occurrence: KR)
  Receive Date: 20210517
  Receipt Date: 20210609
  Transmission Date: 20210717
  Serious: Yes (Hospitalization)
  Sender: FDA-Public Use
  Company Number: KR-ROCHE-2827431

PATIENT
  Age: 40 Year
  Sex: Male
  Weight: 74.5 kg

DRUGS (13)
  1. MUPIROCIN. [Concomitant]
     Active Substance: MUPIROCIN
     Route: 061
     Dates: start: 20210510
  2. CYCLOPHOSPHAMIDE. [Suspect]
     Active Substance: CYCLOPHOSPHAMIDE
     Indication: B-CELL LYMPHOMA
     Dosage: START DATE OF MOST RECENT DOSE OF STUDY DRUG PRIOR TO SAE IS 22/APR/2021?DOSE LAST STUDY DRUG ADMIN
     Route: 042
     Dates: start: 20210216
  3. HYALURONATE SODIUM [Concomitant]
     Active Substance: HYALURONATE SODIUM
     Route: 047
     Dates: start: 20210508
  4. MOSUNETUZUMAB. [Suspect]
     Active Substance: MOSUNETUZUMAB
     Indication: B-CELL LYMPHOMA
     Dosage: DOSE LAST STUDY DRUG ADMIN PRIOR SAE IS 30 MG?START DATE OF MOST RECENT DOSE OF STUDY DRUG PRIOR TO
     Route: 042
     Dates: start: 20210216
  5. KETOROLAC [Concomitant]
     Active Substance: KETOROLAC TROMETHAMINE
     Route: 042
     Dates: start: 20210507, end: 20210507
  6. MOXIFLOXACIN. [Concomitant]
     Active Substance: MOXIFLOXACIN
     Route: 047
     Dates: start: 20210508
  7. GANCICLOVIR. [Concomitant]
     Active Substance: GANCICLOVIR
     Route: 047
     Dates: start: 20210512
  8. DOXORUBICIN [Suspect]
     Active Substance: DOXORUBICIN
     Indication: B-CELL LYMPHOMA
     Dosage: START DATE OF MOST RECENT DOSE OF STUDY DRUG PRIOR TO SAE IS 22/APR/2021?DOSE LAST STUDY DRUG ADMIN
     Route: 042
     Dates: start: 20210216
  9. ACYCLOVIR. [Concomitant]
     Active Substance: ACYCLOVIR
     Route: 047
     Dates: start: 20210508
  10. PREDNISOLONE. [Concomitant]
     Active Substance: PREDNISOLONE
     Route: 047
     Dates: start: 20210512
  11. PREDNISONE. [Suspect]
     Active Substance: PREDNISONE
     Indication: B-CELL LYMPHOMA
     Dosage: START DATE OF MOST RECENT DOSE OF STUDY DRUG PRIOR TO SAE: 26/APR/2021?DOSE LAST STUDY DRUG ADMIN PR
     Route: 048
     Dates: start: 20210216
  12. POLATUZUMAB VEDOTIN. [Suspect]
     Active Substance: POLATUZUMAB VEDOTIN
     Indication: B-CELL LYMPHOMA
     Dosage: START DATE OF MOST RECENT DOSE OF STUDY DRUG PRIOR TO SAE IS 22/APR/2021?DOSE LAST STUDY DRUG ADMIN
     Route: 042
     Dates: start: 20210216
  13. ACYCLOVIR. [Concomitant]
     Active Substance: ACYCLOVIR
     Route: 042
     Dates: start: 20210507

REACTIONS (1)
  - Herpes zoster [Not Recovered/Not Resolved]

NARRATIVE: CASE EVENT DATE: 20210501
